FAERS Safety Report 9802475 (Version 1)
Quarter: 2014Q1

REPORT INFORMATION
  Report Type: Spontaneous
  Country: US (occurrence: US)
  Receive Date: 20140107
  Receipt Date: 20140107
  Transmission Date: 20141002
  Serious: Yes (Other)
  Sender: FDA-Public Use
  Company Number: US-JNJFOC-20131111781

PATIENT
  Age: 70 Year
  Sex: Female
  Weight: 83.46 kg

DRUGS (1)
  1. LISTERINE COOLMINT [Suspect]
     Indication: PRODUCT USED FOR UNKNOWN INDICATION
     Dosage: A LITTLE BIT IN THE COVER.
     Route: 048

REACTIONS (4)
  - Oral bacterial infection [Not Recovered/Not Resolved]
  - Oral pain [Not Recovered/Not Resolved]
  - Toothache [Not Recovered/Not Resolved]
  - Expired drug administered [Unknown]
